FAERS Safety Report 14112060 (Version 5)
Quarter: 2018Q3

REPORT INFORMATION
  Report Type: Spontaneous
  Country: AT (occurrence: AT)
  Receive Date: 20171020
  Receipt Date: 20180926
  Transmission Date: 20181010
  Serious: Yes (Hospitalization, Other)
  Sender: FDA-Public Use
  Company Number: AT-PFIZER INC-2017444686

PATIENT
  Age: 67 Year
  Sex: Female

DRUGS (37)
  1. SEROQUEL [Suspect]
     Active Substance: QUETIAPINE FUMARATE
     Dosage: 400 MG, UNK
     Route: 048
     Dates: start: 20170614, end: 20170616
  2. SEROQUEL [Suspect]
     Active Substance: QUETIAPINE FUMARATE
     Dosage: 175 MG, UNK
     Route: 048
     Dates: start: 20170620, end: 20170620
  3. TEMESTA [Concomitant]
     Dosage: 2.5 MG, UNK
     Dates: start: 20170720
  4. NACL [Concomitant]
     Active Substance: SODIUM CHLORIDE
     Dosage: 2 CAPSULES, UNK
     Dates: start: 20170614, end: 20170620
  5. MOLAXOLE [Concomitant]
     Active Substance: POLYETHYLENE GLYCOL 3350\POTASSIUM CHLORIDE\SODIUM BICARBONATE\SODIUM CHLORIDE
     Dosage: 1 DF, UNK
     Dates: start: 20170614, end: 20170707
  6. RISPERDAL [Concomitant]
     Active Substance: RISPERIDONE
     Dosage: 3 MG, UNK
     Dates: start: 20170630, end: 20170630
  7. RISPERDAL [Concomitant]
     Active Substance: RISPERIDONE
     Dosage: 1.5 MG, UNK
     Dates: start: 20170705, end: 20170705
  8. RISPERDAL [Concomitant]
     Active Substance: RISPERIDONE
     Dosage: 1 MG, UNK
     Dates: start: 20170706, end: 20170706
  9. LEPONEX [Suspect]
     Active Substance: CLOZAPINE
     Dosage: 400 MG, UNK
     Route: 048
     Dates: start: 20170526, end: 20170619
  10. ABILIFY [Suspect]
     Active Substance: ARIPIPRAZOLE
     Dosage: 5 MG, 1X/DAY
     Route: 048
     Dates: start: 20170725, end: 20170726
  11. LOVENOX [Concomitant]
     Active Substance: ENOXAPARIN SODIUM
     Dosage: 40 MG, UNK
     Dates: start: 20170621, end: 20170729
  12. SELEXID [Concomitant]
     Dosage: 400 MG, UNK
     Dates: start: 20170627, end: 20170630
  13. PRAXITEN [Concomitant]
     Active Substance: OXAZEPAM
     Dosage: 150 MG, UNK
     Route: 048
     Dates: start: 20170701, end: 20170704
  14. GLUCOPHAGE [Concomitant]
     Active Substance: METFORMIN HYDROCHLORIDE
     Dosage: 500 MG, UNK
     Dates: start: 20170614, end: 20170703
  15. AMANTADINE SULFATE [Concomitant]
     Active Substance: AMANTADINE SULFATE
     Dosage: 200 MG, UNK
     Dates: start: 20170708, end: 20170719
  16. SEROQUEL [Suspect]
     Active Substance: QUETIAPINE FUMARATE
     Dosage: 300 MG, UNK
     Route: 048
     Dates: start: 20170617, end: 20170618
  17. ABILIFY [Suspect]
     Active Substance: ARIPIPRAZOLE
     Dosage: 7.5 MG, UNK
     Route: 048
     Dates: start: 20160704
  18. PRAXITEN [Concomitant]
     Active Substance: OXAZEPAM
     Dosage: 40 MG, UNK
     Route: 048
     Dates: start: 20170619, end: 20170620
  19. PRAXITEN [Concomitant]
     Active Substance: OXAZEPAM
     Dosage: 100 MG, UNK
     Route: 048
     Dates: start: 20170621, end: 20170626
  20. PRAXITEN [Concomitant]
     Active Substance: OXAZEPAM
     Dosage: 75 MG, UNK
     Route: 048
     Dates: start: 20170705, end: 20170706
  21. PANTOLOC [Concomitant]
     Active Substance: PANTOPRAZOLE SODIUM
     Dosage: 40 MG, UNK
     Dates: start: 20170614, end: 20170707
  22. RISPERDAL [Concomitant]
     Active Substance: RISPERIDONE
     Dosage: 4 MG, UNK
     Dates: start: 20170701, end: 20170702
  23. LEPONEX [Suspect]
     Active Substance: CLOZAPINE
     Dosage: 350 MG, UNK
     Route: 048
     Dates: start: 20170620, end: 20170620
  24. ABILIFY [Suspect]
     Active Substance: ARIPIPRAZOLE
     Dosage: 15 MG, UNK
     Route: 048
     Dates: start: 2016, end: 20161122
  25. PRAXITEN [Concomitant]
     Active Substance: OXAZEPAM
     Dosage: 97.5 MG, UNK
     Route: 048
     Dates: start: 20170617, end: 20170617
  26. AKINETON [Suspect]
     Active Substance: BIPERIDEN HYDROCHLORIDE
     Dosage: 4 MG, UNK
     Dates: start: 20170614, end: 20170622
  27. AKINETON [Suspect]
     Active Substance: BIPERIDEN HYDROCHLORIDE
     Dosage: 4 MG, UNK
     Dates: start: 20170703, end: 20170707
  28. ABILIFY [Suspect]
     Active Substance: ARIPIPRAZOLE
     Dosage: 10 MG, 1X/DAY
     Route: 048
     Dates: start: 20170727
  29. PRAXITEN [Concomitant]
     Active Substance: OXAZEPAM
     Dosage: 50 MG, UNK
     Route: 048
     Dates: start: 20170626, end: 20170630
  30. LAEVOLAC [Concomitant]
     Active Substance: LACTULOSE
     Dosage: 2 SOUP SPOONS
     Dates: start: 20170723
  31. SERTRALINE HCL [Suspect]
     Active Substance: SERTRALINE HYDROCHLORIDE
     Dosage: 100 MG, UNK
     Dates: start: 20170614, end: 20170619
  32. TEMESTA [Concomitant]
     Dosage: 3 MG, UNK
     Dates: start: 20170707, end: 20170719
  33. RISPERDAL [Concomitant]
     Active Substance: RISPERIDONE
     Dosage: 2 MG, UNK
     Dates: start: 20170703, end: 20170704
  34. SEROQUEL [Suspect]
     Active Substance: QUETIAPINE FUMARATE
     Dosage: 250 MG, UNK
     Route: 048
     Dates: start: 20170619, end: 20170619
  35. PRAXITEN [Concomitant]
     Active Substance: OXAZEPAM
     Dosage: 130 MG, UNK
     Route: 048
     Dates: start: 20170614, end: 20170616
  36. PRAXITEN [Concomitant]
     Active Substance: OXAZEPAM
     Dosage: 90 MG, UNK
     Route: 048
     Dates: start: 20170618, end: 20170618
  37. RISPERDAL [Concomitant]
     Active Substance: RISPERIDONE
     Dosage: 1 MG, UNK
     Dates: start: 20170626, end: 20170629

REACTIONS (3)
  - Delirium [Recovered/Resolved]
  - Neuroleptic malignant syndrome [Recovered/Resolved]
  - Extrapyramidal disorder [Recovered/Resolved]

NARRATIVE: CASE EVENT DATE: 20170619
